FAERS Safety Report 15154633 (Version 1)
Quarter: 2018Q3

REPORT INFORMATION
  Report Type: Spontaneous
  Country: US (occurrence: US)
  Receive Date: 20180620
  Receipt Date: 20180620
  Transmission Date: 20181010
  Serious: Yes (Death)
  Sender: FDA-Public Use
  Company Number: None

PATIENT
  Age: 65 Year
  Sex: Female

DRUGS (1)
  1. MYCOPHENOLATE [Suspect]
     Active Substance: MYCOPHENOLIC ACID
     Indication: IMMUNE SYSTEM DISORDER
     Route: 048
     Dates: start: 20180521, end: 20180616

REACTIONS (1)
  - Death [None]

NARRATIVE: CASE EVENT DATE: 20180616
